FAERS Safety Report 10540220 (Version 1)
Quarter: 2014Q4

REPORT INFORMATION
  Report Type: Report from Study
  Country: CN (occurrence: CN)
  Receive Date: 20141024
  Receipt Date: 20141024
  Transmission Date: 20150529
  Serious: Yes (Other)
  Sender: FDA-Public Use
  Company Number: CN-ROCHE-1476416

PATIENT

DRUGS (12)
  1. CYTARABINE. [Suspect]
     Active Substance: CYTARABINE
     Dosage: 150 MG ON DAYS 1-7
     Route: 065
  2. DAUNORUBICIN [Suspect]
     Active Substance: DAUNORUBICIN
     Indication: ACUTE LEUKAEMIA
     Dosage: 40-60 MG ON DAYS 1-3
     Route: 065
  3. ACLACIN [Suspect]
     Active Substance: ACLARUBICIN HYDROCHLORIDE
     Indication: ACUTE LEUKAEMIA
     Dosage: 10 MG ON DAYS 1-4 OR DAYS 1-8
     Route: 065
  4. RITUXIMAB [Suspect]
     Active Substance: RITUXIMAB
     Indication: ACUTE LEUKAEMIA
     Route: 065
  5. CYTARABINE. [Suspect]
     Active Substance: CYTARABINE
     Indication: ACUTE LEUKAEMIA
     Dosage: 150-200 MG ON DAYS 1-5 OR DAYS 1-7
     Route: 065
  6. CYTARABINE. [Suspect]
     Active Substance: CYTARABINE
     Dosage: 12.5-25.0 MG EVERY 12 H ON DAYS 1-14
     Route: 065
  7. MITOXANTRONE [Suspect]
     Active Substance: MITOXANTRONE HYDROCHLORIDE
     Indication: ACUTE LEUKAEMIA
     Dosage: 10 MG ON DAYS 1-3
     Route: 065
  8. VINCRISTINE [Suspect]
     Active Substance: VINCRISTINE
     Indication: ACUTE LEUKAEMIA
     Dosage: 2 MG ON DAYS 1, 8, 15 AND 21
     Route: 065
  9. CYTARABINE. [Suspect]
     Active Substance: CYTARABINE
     Dosage: 150?MG ON DAYS 1-5)
     Route: 065
  10. DAUNORUBICIN [Suspect]
     Active Substance: DAUNORUBICIN
     Dosage: 40 MG ON DAYS 8-9
     Route: 065
  11. CYCLOPHOSPHAMIDE. [Suspect]
     Active Substance: CYCLOPHOSPHAMIDE
     Indication: ACUTE LEUKAEMIA
     Dosage: 800 MG ON DAY 1
     Route: 065
  12. PREDNISONE ACETATE [Suspect]
     Active Substance: PREDNISONE ACETATE
     Indication: ACUTE LEUKAEMIA
     Dosage: 40 MG ON DAYS 1-14
     Route: 065

REACTIONS (14)
  - Skin haemorrhage [Unknown]
  - Bone marrow failure [Unknown]
  - Neutropenic infection [Unknown]
  - Thrombocytopenia [Unknown]
  - Gastrointestinal haemorrhage [Unknown]
  - Myocardial reperfusion injury [Unknown]
  - Cardiac failure [Unknown]
  - Atrial fibrillation [Unknown]
  - Neutropenia [Unknown]
  - Alopecia [Unknown]
  - Mucosal haemorrhage [Unknown]
  - Alanine aminotransferase increased [Unknown]
  - Gastrointestinal disorder [Unknown]
  - Mucosal inflammation [Unknown]
